FAERS Safety Report 16686988 (Version 1)
Quarter: 2019Q3

REPORT INFORMATION
  Report Type: Spontaneous
  Country: DE (occurrence: DE)
  Receive Date: 20190809
  Receipt Date: 20190809
  Transmission Date: 20191004
  Serious: Yes (Hospitalization)
  Sender: FDA-Public Use
  Company Number: DE-ACCORD-150757

PATIENT
  Age: 88 Year
  Sex: Female

DRUGS (14)
  1. PANTOPRAZOLE [Concomitant]
     Active Substance: PANTOPRAZOLE
     Dosage: 40 MG, 1-0-0-0
  2. MOLSIDOMINE [Concomitant]
     Active Substance: MOLSIDOMINE
     Dosage: 8 MG, 0-0-1-0
  3. NALOXONE HYDROCHLORIDE/TILIDINE HYDROCHLORIDE [Concomitant]
     Dosage: 44.12 MG, 1-0-1-0
  4. URAPIDIL [Concomitant]
     Active Substance: URAPIDIL
     Dosage: 60 MG, 0-1-0-1
  5. MACROGOL/POTASSIUM CHLORIDE/SODIUM BICARBONATE/SODIUM CHLORIDE [Concomitant]
     Dosage: NK MG, NK
  6. XIPAMIDE [Concomitant]
     Active Substance: XIPAMIDE
     Dosage: 20 MG, 1-0-0-0
  7. ALLOPURINOL. [Concomitant]
     Active Substance: ALLOPURINOL
     Dosage: 100 MG, 1-0-0-0
  8. ISOSORBIDE. [Concomitant]
     Active Substance: ISOSORBIDE
     Dosage: 40 MG, 1-0-0-0
  9. RAMIPRIL. [Concomitant]
     Active Substance: RAMIPRIL
     Dosage: 5 MG, 1-0-1-0
  10. RIVAROXABAN [Concomitant]
     Active Substance: RIVAROXABAN
     Dosage: 15 MG, 0-0-1-0
  11. NITRENDIPINE [Concomitant]
     Active Substance: NITRENDIPINE
     Dosage: 10 MG, 2-0-2-0
  12. PREGABALIN. [Concomitant]
     Active Substance: PREGABALIN
     Dosage: 75 MG, 1-1-1-0
  13. METAMIZOLE SODIUM [Concomitant]
     Active Substance: METAMIZOLE SODIUM
     Dosage: NK MG, NK
  14. GLIMEPIRIDE. [Suspect]
     Active Substance: GLIMEPIRIDE
     Indication: PRODUCT USED FOR UNKNOWN INDICATION
     Dosage: 3 MG, 1-0-0-0

REACTIONS (4)
  - Arrhythmia [Unknown]
  - Cough [Unknown]
  - Muscular weakness [Unknown]
  - General physical health deterioration [Unknown]
